FAERS Safety Report 11180633 (Version 1)
Quarter: 2015Q2

REPORT INFORMATION
  Report Type: Spontaneous
  Country: CA (occurrence: CA)
  Receive Date: 20150611
  Receipt Date: 20150611
  Transmission Date: 20150821
  Serious: Yes (Other)
  Sender: FDA-Public Use
  Company Number: CA-BAYER-2015-322471

PATIENT
  Sex: Female

DRUGS (1)
  1. BETASERON [Suspect]
     Active Substance: INTERFERON BETA-1B
     Indication: RELAPSING-REMITTING MULTIPLE SCLEROSIS
     Dosage: UNK
     Dates: start: 2004

REACTIONS (9)
  - Tremor [None]
  - Hypoaesthesia [None]
  - Hypothyroidism [None]
  - Fatigue [None]
  - Insomnia [None]
  - Depression [None]
  - Sensitivity to weather change [None]
  - Headache [None]
  - Influenza like illness [None]

NARRATIVE: CASE EVENT DATE: 2010
